FAERS Safety Report 4728836-8 (Version None)
Quarter: 2005Q3

REPORT INFORMATION
  Report Type: 
  Country: None (occurrence: None)
  Receive Date: 20050729
  Receipt Date: 20050708
  Transmission Date: 20060218
  Serious: Yes (Hospitalization)
  Sender: FDA-Public Use
  Company Number: JP-SANOFI-SYNTHELABO-F01200501247

PATIENT
  Sex: Male
  Weight: 52.5 kg

DRUGS (34)
  1. CLOPIDOGREL BISULFATE [Suspect]
     Dosage: LOADING DOSE 300 MG FOLLOWED BY 75 MG DAILY
     Route: 048
     Dates: start: 20050616, end: 20050616
  2. TICLOPIDINE HCL [Suspect]
  3. OPTIRAY 160 [Interacting]
     Indication: ARTERIOGRAM CORONARY
     Dosage: 125 ML
     Route: 022
     Dates: start: 20050620, end: 20050620
  4. ASPIRIN [Concomitant]
     Indication: ANGINA PECTORIS
     Dosage: 100 MG
     Route: 048
  5. NEODOPASTON [Concomitant]
     Indication: PARKINSON'S DISEASE
     Dosage: 300 MG
     Route: 048
  6. SYMMETREL [Concomitant]
     Indication: PARKINSON'S DISEASE
     Dosage: 150 MG
     Route: 048
  7. ARTANE [Concomitant]
     Indication: PARKINSON'S DISEASE
     Dosage: 5 MG
     Route: 048
  8. CONIEL [Concomitant]
     Indication: HYPERTENSION
     Dosage: 4 MG
     Route: 048
  9. DIOVAN [Concomitant]
     Indication: HYPERTENSION
     Dosage: 80 MG
     Route: 048
  10. BI-SIFROL [Concomitant]
     Indication: PARKINSON'S DISEASE
     Dosage: 0.5 MG
     Route: 048
  11. SOLDEM [Concomitant]
     Indication: FLUID REPLACEMENT
     Dosage: 20 ML/HOUR
     Route: 041
     Dates: start: 20050616, end: 20050620
  12. HEPARIN SODIUM [Concomitant]
     Indication: ANGINA PECTORIS
     Dosage: 460.7 IU/HOUR
     Route: 041
     Dates: start: 20050616, end: 20050620
  13. NITRODERM [Concomitant]
     Indication: ANGINA PECTORIS
     Dosage: 25 MG
     Route: 046
     Dates: start: 20050616, end: 20050616
  14. MYOCOR [Concomitant]
     Indication: ANGINA UNSTABLE
     Dosage: 0.3 MG
     Route: 055
     Dates: start: 20050616, end: 20050616
  15. TORSEMIDE [Concomitant]
     Indication: HYPERTENSION
     Dosage: 8 MG
     Route: 048
     Dates: start: 20050617, end: 20050705
  16. TORSEMIDE [Concomitant]
     Dosage: 8 MG
     Route: 048
     Dates: start: 20050714
  17. SIGMART [Concomitant]
     Indication: ANGINA PECTORIS
     Dosage: 15 MG
     Route: 048
     Dates: start: 20050617
  18. FRANDOL TAPE S [Concomitant]
     Indication: ANGINA PECTORIS
     Dosage: 40 MG
     Route: 046
     Dates: start: 20050617
  19. MAGNESIUM OXIDE [Concomitant]
     Indication: CONSTIPATION
     Dosage: 2 G
     Route: 048
     Dates: start: 20050616, end: 20050627
  20. SOLULACT [Concomitant]
     Indication: FLUID REPLACEMENT
     Dosage: 1500 ML
     Route: 041
     Dates: start: 20050620, end: 20050620
  21. SOLULACT [Concomitant]
     Dosage: 1500 ML
     Route: 041
     Dates: start: 20050627, end: 20050701
  22. SOLULACT [Concomitant]
     Dosage: 500 ML
     Route: 048
     Dates: start: 20050621, end: 20050621
  23. CERCINE [Concomitant]
     Indication: CORONARY REVASCULARISATION
     Dosage: 5 MG
     Route: 048
     Dates: start: 20050620, end: 20050620
  24. CRAVIT [Concomitant]
     Indication: INFECTION
     Dosage: 200 MG
     Route: 048
     Dates: start: 20050620, end: 20050620
  25. ATARAX [Concomitant]
     Indication: ULCER
     Dosage: 25 MG
     Route: 030
     Dates: start: 20050620, end: 20050620
  26. XYLOCAINE [Concomitant]
     Indication: LOCAL ANAESTHESIA
     Dosage: PROPERLY
     Route: 058
     Dates: start: 20050620, end: 20050620
  27. NITOROL [Concomitant]
     Indication: ANGINA PECTORIS
     Dosage: 4 MG
     Route: 022
     Dates: start: 20050620, end: 20050620
  28. PROTAMINE [Concomitant]
     Indication: HEPARIN NEUTRALISATION THERAPY
     Dosage: 20 MG
     Route: 041
     Dates: start: 20050620, end: 20050620
  29. GLUCOSE [Concomitant]
     Dosage: 50 ML
     Route: 041
     Dates: start: 20050620, end: 20050620
  30. CEFAZOLIN [Concomitant]
     Indication: INFECTION
     Dosage: 2 G
     Route: 041
     Dates: start: 20050620, end: 20050622
  31. ISOTONIC SODIUM CHLORIDE SOLUTION [Concomitant]
     Dosage: 200 ML
     Route: 041
     Dates: start: 20050620, end: 20050622
  32. ARTIST [Concomitant]
     Indication: HYPERTENSION
     Dosage: 5 MG
     Route: 048
     Dates: start: 20050624
  33. MAGMITT [Concomitant]
     Indication: CONSTIPATION
     Dosage: 990 MG
     Route: 048
     Dates: start: 20050628
  34. HARNAL [Concomitant]
     Indication: DYSURIA
     Dosage: 0.2 MG
     Route: 048
     Dates: start: 20050628

REACTIONS (4)
  - OEDEMA PERIPHERAL [None]
  - RENAL IMPAIRMENT [None]
  - STRESS [None]
  - WEIGHT INCREASED [None]
